FAERS Safety Report 4541209-6 (Version None)
Quarter: 2004Q4

REPORT INFORMATION
  Report Type: 
  Country: None (occurrence: None)
  Receive Date: 20041229
  Receipt Date: 20041104
  Transmission Date: 20050328
  Serious: Yes (Death, Life-Threatening)
  Sender: FDA-Public Use
  Company Number: JP-ABBOTT-04P-087-0282413-00

PATIENT
  Sex: Male

DRUGS (9)
  1. SEVORANE LIQUID FOR INHALATION [Suspect]
     Indication: ANAESTHESIA
     Dosage: 0.5-1%
     Route: 055
     Dates: start: 20000418, end: 20000418
  2. OXYGEN [Concomitant]
     Indication: ANAESTHESIA
     Dates: start: 20000418, end: 20000418
  3. FENTANYL [Concomitant]
     Indication: SEDATION
     Route: 042
     Dates: start: 20000418, end: 20000418
  4. FENTANYL [Concomitant]
     Indication: ANALGESIC EFFECT
  5. MIDAZOLAM HCL [Concomitant]
     Indication: ANAESTHESIA
     Route: 042
     Dates: start: 20000418, end: 20000418
  6. DOPAMINE HYDROCHLORIDE [Concomitant]
     Indication: BLOOD PRESSURE DECREASED
     Dosage: 5-6 MICROGRAMS PER KILOGRAM PER MINUTE
     Route: 042
     Dates: start: 20000418, end: 20000418
  7. VECURONIUM BROMIDE [Concomitant]
     Indication: MUSCLE RELAXANT THERAPY
     Route: 042
     Dates: start: 20000418, end: 20000418
  8. DROPERIDOL [Concomitant]
     Indication: INDUCTION OF ANAESTHESIA
  9. THIOPENTAL SODIUM [Concomitant]
     Indication: ANAESTHESIA

REACTIONS (5)
  - ANAESTHETIC COMPLICATION [None]
  - HAEMODIALYSIS [None]
  - MULTI-ORGAN FAILURE [None]
  - RENAL FAILURE ACUTE [None]
  - RHABDOMYOLYSIS [None]
